FAERS Safety Report 7822332-7 (Version None)
Quarter: 2011Q4

REPORT INFORMATION
  Report Type: 
  Country: None (occurrence: None)
  Receive Date: 20111018
  Receipt Date: 20110401
  Transmission Date: 20120403
  Serious: No
  Sender: FDA-Public Use
  Company Number: US-ASTRAZENECA-2011SE09627

PATIENT
  Sex: Female

DRUGS (4)
  1. PREDNISONE [Concomitant]
  2. PREDNISONE [Concomitant]
     Indication: TEMPORAL ARTERITIS
  3. ALBUTEROL [Concomitant]
  4. SYMBICORT [Suspect]
     Indication: ASTHMA
     Dosage: TOTAL DAILY DOSE: 160 UG BID
     Route: 055
     Dates: start: 20101101

REACTIONS (2)
  - DYSPNOEA [None]
  - VIRAL INFECTION [None]
